FAERS Safety Report 8864217 (Version 1)
Quarter: 2012Q4

REPORT INFORMATION
  Report Type: 
  Country: US (occurrence: US)
  Receive Date: 20121024
  Receipt Date: 20121024
  Transmission Date: 20130627
  Serious: Yes (Other)
  Sender: FDA-Public Use
  Company Number: US-AMGEN-USASP2011066378

PATIENT
  Sex: Female

DRUGS (10)
  1. ENBREL [Suspect]
     Indication: PRODUCT USED FOR UNKNOWN INDICATION
     Dosage: 50 mg, qwk
     Dates: start: 2001
  2. ZOLOFT [Concomitant]
     Dosage: 25 mg, UNK
  3. METHOTREXATE [Concomitant]
     Dosage: 2.5 mg, UNK
  4. SYNTHROID [Concomitant]
     Dosage: 25 mug, UNK
  5. IMITREX [Concomitant]
     Dosage: 25 mg, UNK
  6. MULTIVITAMINS [Concomitant]
  7. FISH OIL [Concomitant]
  8. FOLIC ACID [Concomitant]
  9. VITAMIN D [Concomitant]
     Dosage: 1000 IU, UNK
  10. VITAMIN B12 [Concomitant]
     Dosage: UNK mg, UNK

REACTIONS (5)
  - Systemic mycosis [Unknown]
  - Pharyngeal oedema [Unknown]
  - Oropharyngeal pain [Unknown]
  - Fatigue [Unknown]
  - Feeling abnormal [Unknown]
